FAERS Safety Report 18152451 (Version 1)
Quarter: 2020Q3

REPORT INFORMATION
  Report Type: Spontaneous
  Country: US (occurrence: US)
  Receive Date: 20200814
  Receipt Date: 20200814
  Transmission Date: 20201103
  Serious: Yes (Other)
  Sender: FDA-Public Use
  Company Number: US-SA-200020149US

PATIENT

DRUGS (8)
  1. ARAVA [Suspect]
     Active Substance: LEFLUNOMIDE
     Dosage: 30 MG,QD
     Route: 048
     Dates: start: 200006, end: 200007
  2. AZATHIOPRINE. [Concomitant]
     Active Substance: AZATHIOPRINE
     Dosage: DOSE AS USED: UNK
     Route: 065
  3. HYDROXYCHLOROQUINE PHOSPHATE [Concomitant]
     Active Substance: HYDROXYCHLOROQUINE DIPHOSPHATE
     Dosage: DOSE AS USED: UNK
     Route: 065
  4. PREDNISONE. [Concomitant]
     Active Substance: PREDNISONE
     Dosage: DOSE AS USED: VARYING DOSES
     Route: 065
     Dates: start: 199912
  5. ARAVA [Suspect]
     Active Substance: LEFLUNOMIDE
     Indication: POLYCHONDRITIS
     Dosage: 100 MG,QD
     Route: 048
     Dates: start: 200005, end: 200005
  6. LEVOFLOXACIN. [Concomitant]
     Active Substance: LEVOFLOXACIN
     Indication: SINUSITIS
     Dosage: UNK UNK,QD
     Route: 065
     Dates: start: 200007, end: 200007
  7. ARAVA [Suspect]
     Active Substance: LEFLUNOMIDE
     Dosage: 20 MG,QD
     Route: 048
     Dates: start: 200005, end: 200006
  8. METHOTREXATE. [Concomitant]
     Active Substance: METHOTREXATE
     Dosage: DOSE AS USED: UNK
     Route: 065
     Dates: end: 200005

REACTIONS (8)
  - Thrombocytosis [Recovered/Resolved]
  - White blood cell count increased [Unknown]
  - Leukocytosis [Recovered/Resolved]
  - Burning sensation [Recovered/Resolved]
  - Pyrexia [Recovered/Resolved]
  - Platelet count increased [Recovered/Resolved]
  - Photophobia [Recovered/Resolved]
  - C-reactive protein increased [Recovered/Resolved]

NARRATIVE: CASE EVENT DATE: 200007
